FAERS Safety Report 14373464 (Version 1)
Quarter: 2018Q1

REPORT INFORMATION
  Report Type: Spontaneous
  Country: IT (occurrence: IT)
  Receive Date: 20180110
  Receipt Date: 20180110
  Transmission Date: 20180509
  Serious: Yes (Hospitalization)
  Sender: FDA-Public Use
  Company Number: IT-TEVA-2017-IT-842069

PATIENT
  Age: 92 Year
  Sex: Male

DRUGS (6)
  1. GLIMEPIRIDE. [Suspect]
     Active Substance: GLIMEPIRIDE
     Indication: DIABETES MELLITUS
     Route: 048
     Dates: start: 20170101, end: 20170308
  2. ALLOPURINOL. [Concomitant]
     Active Substance: ALLOPURINOL
  3. PEPTAZOL 40 MG COMPRESSE GASTRORESISTENTI [Concomitant]
  4. LOBIVON 5 MG COMPRESSE [Concomitant]
  5. ZANEDIP 10 MG COMPRESSE RIVESTITE CON FILM [Concomitant]
  6. COUMADIN [Concomitant]
     Active Substance: WARFARIN SODIUM

REACTIONS (3)
  - Diarrhoea [Unknown]
  - Malaise [Unknown]
  - Hypoglycaemia [Unknown]

NARRATIVE: CASE EVENT DATE: 20170308
